FAERS Safety Report 8431273-6 (Version None)
Quarter: 2012Q2

REPORT INFORMATION
  Report Type: 
  Country: None (occurrence: None)
  Receive Date: 20120613
  Receipt Date: 20120606
  Transmission Date: 20120825
  Serious: Yes (Hospitalization, Disabling)
  Sender: FDA-Public Use
  Company Number: US-BIOGENIDEC-2011BI042269

PATIENT
  Age: 64 Year
  Sex: Female
  Weight: 107 kg

DRUGS (12)
  1. VICODIN [Concomitant]
     Route: 048
  2. AMBIEN [Concomitant]
     Route: 048
  3. OMEPRAZOLE [Concomitant]
     Route: 048
     Dates: start: 20110808
  4. VESICARE [Concomitant]
     Route: 048
     Dates: start: 20110911
  5. ATIVAN [Concomitant]
     Route: 048
     Dates: start: 20110623
  6. COUMADIN [Concomitant]
  7. TYSABRI [Suspect]
     Indication: MULTIPLE SCLEROSIS
     Route: 042
     Dates: start: 20081103
  8. PLAVIX [Concomitant]
     Route: 048
  9. SOMA [Concomitant]
     Route: 048
     Dates: start: 20110907
  10. KEFLEX [Concomitant]
     Route: 048
     Dates: start: 20110729
  11. ZOLOFT [Concomitant]
     Route: 048
  12. VICODIN [Concomitant]
     Route: 048

REACTIONS (3)
  - CHEST PAIN [None]
  - ATRIAL FIBRILLATION [None]
  - UPPER GASTROINTESTINAL HAEMORRHAGE [None]
